FAERS Safety Report 7270093-5 (Version None)
Quarter: 2011Q1

REPORT INFORMATION
  Report Type: 
  Country: None (occurrence: None)
  Receive Date: 20110125
  Receipt Date: 20110111
  Transmission Date: 20110831
  Serious: Yes (Other)
  Sender: FDA-Public Use
  Company Number: FR-GDP-11409783

PATIENT
  Sex: Female
  Weight: 60 kg

DRUGS (1)
  1. CLOBEX [Suspect]
     Indication: PSORIASIS
     Dosage: (1 DF QD TOPICAL)
     Route: 061
     Dates: start: 20100301, end: 20110110

REACTIONS (1)
  - CUSHING'S SYNDROME [None]
